FAERS Safety Report 9519298 (Version 3)
Quarter: 2013Q4

REPORT INFORMATION
  Report Type: Report from Study
  Country: JP (occurrence: JP)
  Receive Date: 20130912
  Receipt Date: 20131025
  Transmission Date: 20140711
  Serious: Yes (Death, Hospitalization, Other)
  Sender: FDA-Public Use
  Company Number: JP-GILEAD-2013-0081322

PATIENT
  Age: 68 Year
  Sex: Female
  Weight: 45 kg

DRUGS (23)
  1. AMBRISENTAN [Suspect]
     Indication: PULMONARY ARTERIAL HYPERTENSION
     Dosage: 2.5 MG, QD
     Route: 048
     Dates: start: 20111024, end: 20130314
  2. AMBRISENTAN [Suspect]
     Dosage: 2.5 MG, BID
     Route: 048
     Dates: start: 20130315, end: 20130706
  3. AMBRISENTAN [Suspect]
     Dosage: 2.5 MG, BID
     Route: 048
  4. ADCIRCA [Suspect]
     Indication: PULMONARY ARTERIAL HYPERTENSION
     Route: 048
     Dates: start: 20120316, end: 20130706
  5. ADCIRCA [Suspect]
     Route: 048
     Dates: start: 20130719, end: 20130813
  6. REVATIO [Concomitant]
     Indication: PULMONARY ARTERIAL HYPERTENSION
     Route: 048
     Dates: start: 20120124, end: 20120315
  7. CARELOAD [Concomitant]
     Indication: PULMONARY ARTERIAL HYPERTENSION
     Route: 048
     Dates: start: 201101, end: 20130706
  8. ALDACTONE A [Concomitant]
     Indication: PULMONARY ARTERIAL HYPERTENSION
     Route: 048
     Dates: end: 20130706
  9. ALDACTONE A [Concomitant]
     Route: 048
     Dates: start: 20130719, end: 20130813
  10. FUROSEMIDE [Concomitant]
     Indication: PULMONARY ARTERIAL HYPERTENSION
     Route: 048
     Dates: end: 20130706
  11. FUROSEMIDE [Concomitant]
     Route: 048
     Dates: start: 20130719, end: 20130813
  12. METILDIGOXIN [Concomitant]
     Indication: PULMONARY ARTERIAL HYPERTENSION
     Route: 048
     Dates: end: 20130706
  13. METILDIGOXIN [Concomitant]
     Route: 048
     Dates: start: 20130719, end: 20130813
  14. OMEPRAL                            /00661201/ [Concomitant]
     Indication: PROPHYLAXIS
     Route: 048
     Dates: end: 20130228
  15. ENDOXAN                            /00021101/ [Concomitant]
     Route: 048
     Dates: start: 20120128, end: 20130706
  16. ALFAROL [Concomitant]
     Route: 048
     Dates: end: 20130706
  17. ALFAROL [Concomitant]
     Route: 048
     Dates: start: 20130719, end: 20130813
  18. EPADEL-S [Concomitant]
     Dosage: UNK
     Dates: end: 20130706
  19. PARIET [Concomitant]
     Indication: PROPHYLAXIS
     Dosage: UNK
     Route: 048
     Dates: start: 20130301, end: 20130706
  20. PARIET [Concomitant]
     Route: 048
     Dates: start: 20130719, end: 20130813
  21. PIRESPA [Concomitant]
     Dosage: UNK
     Dates: start: 20120316, end: 20120706
  22. PIRESPA [Concomitant]
     Route: 048
     Dates: start: 20120316, end: 20130706
  23. PIRESPA [Concomitant]
     Route: 048
     Dates: start: 20130719, end: 20130813

REACTIONS (6)
  - Cardio-respiratory arrest [Fatal]
  - Cardiac failure [Recovering/Resolving]
  - Anaemia [Not Recovered/Not Resolved]
  - Liver disorder [Recovering/Resolving]
  - White blood cell count decreased [Not Recovered/Not Resolved]
  - Fluid retention [Recovering/Resolving]
